FAERS Safety Report 15493728 (Version 1)
Quarter: 2018Q4

REPORT INFORMATION
  Report Type: Spontaneous
  Country: US (occurrence: US)
  Receive Date: 20181012
  Receipt Date: 20181012
  Transmission Date: 20190205
  Serious: Yes (Hospitalization)
  Sender: FDA-Public Use
  Company Number: None

PATIENT
  Age: 64 Year
  Sex: Male

DRUGS (6)
  1. CLINDAMYCIN. [Suspect]
     Active Substance: CLINDAMYCIN
  2. FUOSEMIDE [Concomitant]
     Active Substance: FUROSEMIDE
  3. POTASSIUM CHLORIDE. [Concomitant]
     Active Substance: POTASSIUM CHLORIDE
  4. METOLAZONE. [Concomitant]
     Active Substance: METOLAZONE
  5. WARFARIN [Concomitant]
     Active Substance: WARFARIN
  6. SILDENAFIL, 20 MG [Suspect]
     Active Substance: SILDENAFIL
     Indication: PULMONARY HYPERTENSION
     Route: 048

REACTIONS (4)
  - Dyspnoea [None]
  - Cardiac failure congestive [None]
  - Cellulitis [None]
  - Cough [None]

NARRATIVE: CASE EVENT DATE: 20181003
